FAERS Safety Report 5502856-8 (Version None)
Quarter: 2007Q4

REPORT INFORMATION
  Report Type: 
  Country: None (occurrence: None)
  Receive Date: 20071029
  Receipt Date: 20071029
  Transmission Date: 20080405
  Serious: Yes (Death, Life-Threatening, Hospitalization)
  Sender: FDA-Public Use
  Company Number: None

PATIENT
  Age: 52 Year
  Sex: Male
  Weight: 117.9352 kg

DRUGS (2)
  1. LANTRISUL TAB [Suspect]
     Indication: TYPE 1 DIABETES MELLITUS
     Dosage: 55 UNITS ONCE DAILY SQ
     Route: 058
     Dates: start: 20060607, end: 20070413
  2. BYETTA [Suspect]
     Indication: TYPE 1 DIABETES MELLITUS
     Dosage: 10 MCG TWICE A DAY SQ
     Route: 058
     Dates: start: 20070324, end: 20070405

REACTIONS (3)
  - ABDOMINAL PAIN UPPER [None]
  - BLOOD GLUCOSE DECREASED [None]
  - BLOOD GLUCOSE INCREASED [None]
